FAERS Safety Report 11739556 (Version 1)
Quarter: 2015Q4

REPORT INFORMATION
  Report Type: Spontaneous
  Country: US (occurrence: US)
  Receive Date: 20151110
  Receipt Date: 20151110
  Transmission Date: 20160304
  Serious: No
  Sender: FDA-Public Use
  Company Number: US-ELI_LILLY_AND_COMPANY-US201203001705

PATIENT
  Sex: Female

DRUGS (5)
  1. OXYGEN. [Concomitant]
     Active Substance: OXYGEN
  2. FORTEO [Suspect]
     Active Substance: TERIPARATIDE
     Dosage: 20 UG, QD
  3. FORTEO [Suspect]
     Active Substance: TERIPARATIDE
     Indication: OSTEOPOROSIS
     Dosage: 20 UG, QD
     Dates: start: 20120223
  4. FORTEO [Suspect]
     Active Substance: TERIPARATIDE
     Dosage: 20 UG, QD
  5. FORTEO [Suspect]
     Active Substance: TERIPARATIDE
     Dosage: 20 UG, QD

REACTIONS (10)
  - Injection site reaction [Unknown]
  - Nasal dryness [Unknown]
  - Arthralgia [Unknown]
  - Injection site pain [Recovered/Resolved]
  - Nausea [Unknown]
  - Epistaxis [Not Recovered/Not Resolved]
  - Incorrect dose administered [Unknown]
  - Blood disorder [Unknown]
  - Malaise [Not Recovered/Not Resolved]
  - Dizziness [Unknown]
